FAERS Safety Report 18261916 (Version 1)
Quarter: 2020Q3

REPORT INFORMATION
  Report Type: Spontaneous
  Country: CA (occurrence: CA)
  Receive Date: 20200914
  Receipt Date: 20200914
  Transmission Date: 20201103
  Serious: Yes (Other)
  Sender: FDA-Public Use
  Company Number: CA-MYLANLABS-2020M1078260

PATIENT
  Age: 56 Year
  Sex: Female

DRUGS (2)
  1. FUROSEMIDE. [Interacting]
     Active Substance: FUROSEMIDE
     Indication: CARDIAC FAILURE CONGESTIVE
     Route: 065
  2. METHOTREXATE. [Suspect]
     Active Substance: METHOTREXATE
     Indication: ERYTHRODERMIC ATOPIC DERMATITIS
     Dosage: 7.5 MILLIGRAM, QD
     Route: 048

REACTIONS (5)
  - Skin necrosis [Recovering/Resolving]
  - Product communication issue [Unknown]
  - Accidental overdose [Unknown]
  - Drug interaction [Recovering/Resolving]
  - Pancytopenia [Recovering/Resolving]
